FAERS Safety Report 19516661 (Version 1)
Quarter: 2021Q3

REPORT INFORMATION
  Report Type: Spontaneous
  Country: GB (occurrence: GB)
  Receive Date: 20210709
  Receipt Date: 20210709
  Transmission Date: 20211014
  Serious: Yes (Other)
  Sender: FDA-Public Use
  Company Number: GB-BAXTER-2021BAX020501

PATIENT
  Age: 14 Year
  Sex: Female

DRUGS (12)
  1. SODIUM CHLORIDE. [Concomitant]
     Active Substance: SODIUM CHLORIDE
     Indication: ILL-DEFINED DISORDER
     Dosage: UNK, (USE AS DIRECTED)
     Route: 065
     Dates: start: 20210507, end: 20210514
  2. LANSOPRAZOLE. [Concomitant]
     Active Substance: LANSOPRAZOLE
     Indication: ILL-DEFINED DISORDER
     Dosage: UNK, (DISSOLVE ONE TABLET IN 15MLS OF WATER AND GIVE)
     Route: 065
     Dates: start: 20210507
  3. TRANSDERM SCOP [Suspect]
     Active Substance: SCOPOLAMINE
     Indication: PRODUCT USED FOR UNKNOWN INDICATION
     Dosage: UNK, (APPLY ONE PATCH EVERY 72 HOURS)
     Route: 065
     Dates: start: 20210507
  4. FERROUS FUMARATE [Concomitant]
     Active Substance: FERROUS FUMARATE
     Indication: ILL-DEFINED DISORDER
     Dosage: UNK UNK, TID, (280MG (10ML)  TO BE TAKEN THREE TIMES DAILY)
     Route: 065
     Dates: start: 20210507
  5. TRIHEXYPHENIDYL HYDROCHLORIDE. [Concomitant]
     Active Substance: TRIHEXYPHENIDYL HYDROCHLORIDE
     Indication: ILL-DEFINED DISORDER
     Dosage: UNK UNK, BID, (2MG  (2ML) EVERY 12HRS AS DIRECTED)
     Route: 065
     Dates: start: 20210507
  6. BACLOFEN. [Concomitant]
     Active Substance: BACLOFEN
     Indication: ILL-DEFINED DISORDER
     Dosage: UNK, (USE THIS NEW DOSE ?? 7MG (7ML)  TO BE TAKEN FOU...)
     Route: 065
     Dates: start: 20210507
  7. TRANSDERM SCOP [Suspect]
     Active Substance: SCOPOLAMINE
     Indication: ILL-DEFINED DISORDER
     Dosage: UNK, (1MG/72HOURS)
     Route: 065
     Dates: start: 20210601
  8. CHLORPHENAMINE [Concomitant]
     Active Substance: CHLORPHENIRAMINE MALEATE
     Indication: ILL-DEFINED DISORDER
     Dosage: UNK UNK, BID, (5ML TWICE A DAY FOR 5 DAYS)
     Route: 065
     Dates: start: 20210611, end: 20210616
  9. LACTULOSE. [Concomitant]
     Active Substance: LACTULOSE
     Indication: ILL-DEFINED DISORDER
     Dosage: UNK UNK, BID, (5ML TWICE DAILY)
     Route: 065
     Dates: start: 20210507, end: 20210512
  10. PARACETAMOL [Concomitant]
     Active Substance: ACETAMINOPHEN
     Indication: ILL-DEFINED DISORDER
     Dosage: UNK, QID, (TAKE ONE OR TWO 5ML SPOONFULS UP TO FOUR TIMES)
     Route: 065
     Dates: start: 20210519, end: 20210524
  11. CHLORAL HYDRATE [Concomitant]
     Active Substance: CHLORAL HYDRATE
     Indication: ILL-DEFINED DISORDER
     Dosage: UNK UNK, QD, (345MG (3.45 ML) AT NIGHT AS DIRECTED)
     Route: 065
     Dates: start: 20210507
  12. DIAZEPAM. [Concomitant]
     Active Substance: DIAZEPAM
     Indication: ILL-DEFINED DISORDER
     Dosage: UNK, (USE AS DIRECTED)
     Route: 065
     Dates: start: 20210315, end: 20210507

REACTIONS (1)
  - Application site rash [Recovering/Resolving]

NARRATIVE: CASE EVENT DATE: 20210624
